FAERS Safety Report 21777501 (Version 1)
Quarter: 2022Q4

REPORT INFORMATION
  Report Type: Spontaneous
  Country: US (occurrence: US)
  Receive Date: 20221226
  Receipt Date: 20221226
  Transmission Date: 20230113
  Serious: No
  Sender: FDA-Public Use
  Company Number: US-MIGRATION_PFIZER-2022BHV003221

PATIENT
  Age: 45 Year
  Sex: Male
  Weight: 108.05 kg

DRUGS (1)
  1. NURTEC ODT [Suspect]
     Active Substance: RIMEGEPANT SULFATE
     Indication: Product used for unknown indication
     Dosage: HE STOPPED TAKING THE MEDICATION BECAUSE IT WAS NOT EFFECTIVE
     Route: 065

REACTIONS (1)
  - Drug ineffective [Unknown]
